FAERS Safety Report 6839638-0 (Version None)
Quarter: 2010Q2

REPORT INFORMATION
  Report Type: 
  Country: None (occurrence: None)
  Receive Date: 20100629
  Receipt Date: 20100415
  Transmission Date: 20101027
  Serious: No
  Sender: FDA-Public Use
  Company Number: US-WYE-H14632510

PATIENT
  Sex: Male

DRUGS (1)
  1. PRISTIQ [Suspect]
     Dates: start: 20100401

REACTIONS (5)
  - INSOMNIA [None]
  - MUSCLE TIGHTNESS [None]
  - NAUSEA [None]
  - NERVOUSNESS [None]
  - RETCHING [None]
